FAERS Safety Report 8216579-8 (Version None)
Quarter: 2012Q1

REPORT INFORMATION
  Report Type: 
  Country: None (occurrence: None)
  Receive Date: 20120316
  Receipt Date: 20120312
  Transmission Date: 20120608
  Serious: Yes (Hospitalization)
  Sender: FDA-Public Use
  Company Number: NL-MEDIMMUNE-MEDI-0014260

PATIENT
  Sex: Male
  Weight: 3.61 kg

DRUGS (3)
  1. SYNAGIS [Suspect]
     Indication: PREMATURE BABY
     Route: 030
     Dates: start: 20111020, end: 20111122
  2. SYNAGIS [Suspect]
     Route: 030
     Dates: start: 20111219, end: 20120312
  3. FERROUS GLUCONATE [Concomitant]

REACTIONS (8)
  - PALLOR [None]
  - SOMNOLENCE [None]
  - OXYGEN SATURATION DECREASED [None]
  - DYSPNOEA [None]
  - HYPOPHAGIA [None]
  - FLUID INTAKE REDUCED [None]
  - CRYING [None]
  - CYANOSIS [None]
